FAERS Safety Report 18918114 (Version 1)
Quarter: 2021Q1

REPORT INFORMATION
  Report Type: Spontaneous
  Country: JP (occurrence: JP)
  Receive Date: 20210220
  Receipt Date: 20210220
  Transmission Date: 20210420
  Serious: Yes (Other)
  Sender: FDA-Public Use
  Company Number: JP-LUPIN PHARMACEUTICALS INC.-2021-01957

PATIENT
  Age: 75 Year
  Sex: Female

DRUGS (4)
  1. ADALIMUMAB [Suspect]
     Active Substance: ADALIMUMAB
     Indication: SAPHO SYNDROME
     Dosage: 40 MILLIGRAM,PER TWO WEEKS
     Route: 065
  2. CELECOXIB. [Suspect]
     Active Substance: CELECOXIB
     Indication: SAPHO SYNDROME
     Dosage: 400 MILLIGRAM, QD
     Route: 065
  3. METHOTREXATE. [Suspect]
     Active Substance: METHOTREXATE
     Indication: SAPHO SYNDROME
     Dosage: 8 MILLIGRAM,WEEKLY
     Route: 065
  4. METHOTREXATE. [Suspect]
     Active Substance: METHOTREXATE
     Dosage: 6 MILLIGRAM WEEKLY
     Route: 065

REACTIONS (1)
  - Drug ineffective [Unknown]
